FAERS Safety Report 14122728 (Version 1)
Quarter: 2017Q4

REPORT INFORMATION
  Report Type: Spontaneous
  Country: US (occurrence: None)
  Receive Date: 20171024
  Receipt Date: 20171024
  Transmission Date: 20180321
  Serious: Yes (Hospitalization)
  Sender: FDA-Public Use
  Company Number: None

PATIENT
  Age: 73 Year
  Sex: Female

DRUGS (12)
  1. ESBRIET [Suspect]
     Active Substance: PIRFENIDONE
     Indication: IDIOPATHIC PULMONARY FIBROSIS
     Dosage: 267MG/534MG TID/TID PO?801MG TID
     Route: 048
     Dates: start: 20170613
  2. ALBUTEROL. [Concomitant]
     Active Substance: ALBUTEROL
  3. IPRATROPIUM [Concomitant]
     Active Substance: IPRATROPIUM
  4. CLOPIDOGREL [Concomitant]
     Active Substance: CLOPIDOGREL BISULFATE
  5. POT CL MICRO [Concomitant]
  6. AZATHIOPRINE. [Concomitant]
     Active Substance: AZATHIOPRINE
  7. WARFARIN [Concomitant]
     Active Substance: WARFARIN
  8. PANTOPRAZOLE [Concomitant]
     Active Substance: PANTOPRAZOLE
  9. ATORVASTATIN [Concomitant]
     Active Substance: ATORVASTATIN
  10. PREDNISONE. [Concomitant]
     Active Substance: PREDNISONE
  11. BUMETANIDE. [Concomitant]
     Active Substance: BUMETANIDE
  12. BENZONATATE. [Concomitant]
     Active Substance: BENZONATATE

REACTIONS (2)
  - Pneumonia [None]
  - Drug dose omission [None]

NARRATIVE: CASE EVENT DATE: 201709
